FAERS Safety Report 14964932 (Version 1)
Quarter: 2018Q2

REPORT INFORMATION
  Report Type: Spontaneous
  Country: AU (occurrence: AU)
  Receive Date: 20180601
  Receipt Date: 20180601
  Transmission Date: 20180711
  Serious: Yes (Other)
  Sender: FDA-Public Use
  Company Number: AU-MYLANLABS-2018M1036491

PATIENT
  Sex: Male

DRUGS (4)
  1. PREDNISOLONE. [Suspect]
     Active Substance: PREDNISOLONE
     Indication: PEMPHIGUS
     Dosage: HIGH DOSE
     Route: 065
  2. AZATHIOPRINE. [Concomitant]
     Active Substance: AZATHIOPRINE
     Indication: PEMPHIGUS
     Route: 065
  3. IMMUNE GLOBULIN [Concomitant]
     Active Substance: HUMAN IMMUNOGLOBULIN G
     Indication: PEMPHIGUS
     Route: 042
  4. VALACYCLOVIR                       /01269701/ [Concomitant]
     Active Substance: VALACYCLOVIR HYDROCHLORIDE
     Indication: PEMPHIGUS
     Route: 065

REACTIONS (7)
  - Latent tuberculosis [Unknown]
  - Herpes simplex [Unknown]
  - Varicella zoster virus infection [Unknown]
  - Facial paralysis [Unknown]
  - Osteopenia [Unknown]
  - Hepatitis B [Unknown]
  - Cushing^s syndrome [Unknown]
